FAERS Safety Report 12984349 (Version 12)
Quarter: 2017Q2

REPORT INFORMATION
  Report Type: Report from Study
  Country: None (occurrence: BE)
  Receive Date: 20161129
  Receipt Date: 20170417
  Transmission Date: 20170830
  Serious: Yes (Hospitalization)
  Sender: FDA-Public Use
  Company Number: BE-ABBVIE-16P-013-1793686-00

PATIENT
  Sex: Female

DRUGS (17)
  1. DUODOPA [Suspect]
     Active Substance: CARBIDOPA\LEVODOPA
     Indication: PARKINSON^S DISEASE
     Dosage: AM= 2.5 ML; CD= 1.6 ML/H DURING 16 HRS; ED= 1.5 ML
     Route: 050
     Dates: start: 20120319, end: 20120403
  2. DUODOPA [Suspect]
     Active Substance: CARBIDOPA\LEVODOPA
     Dosage: AM= 1.8 ML; CD= 2.3 ML/H DURING 16 HRS; ED= 0 ML
     Route: 050
     Dates: start: 20161129, end: 20161210
  3. DUODOPA [Suspect]
     Active Substance: CARBIDOPA\LEVODOPA
     Dosage: AM=0.8ML, CD=2ML/HR DURING 16HRS, ED=0ML
     Route: 050
     Dates: start: 20161216, end: 20170131
  4. DUODOPA [Suspect]
     Active Substance: CARBIDOPA\LEVODOPA
     Dosage: AM= 0.5 ML; CD= 1.7 ML/H DURING 16 HRS; ED= 0 ML
     Route: 050
     Dates: start: 20170202, end: 20170206
  5. DUODOPA [Suspect]
     Active Substance: CARBIDOPA\LEVODOPA
     Dosage: AM=0.8ML, CD=2.3ML/HR DURING 16HRS, ED=0ML
     Route: 050
     Dates: start: 20161215, end: 20161216
  6. REQUIP [Concomitant]
     Active Substance: ROPINIROLE HYDROCHLORIDE
     Indication: PRODUCT USED FOR UNKNOWN INDICATION
  7. PROLOPA [Concomitant]
     Active Substance: BENSERAZIDE\LEVODOPA
     Dosage: FORM STRENGTH: 200MG/50MG, UNIT DOSE: 0.25 TABLET, 5/DAY AS RESCUE MEDICATION
  8. DUODOPA [Suspect]
     Active Substance: CARBIDOPA\LEVODOPA
     Dosage: AM: 0.5 ML, CD: 1.7 ML (AM)/1.8 ML (PM)/HR DURING 16 HRS, ED: 0 ML
     Route: 050
     Dates: start: 20170210
  9. REQUIP [Concomitant]
     Active Substance: ROPINIROLE HYDROCHLORIDE
  10. PROLOPA HBS [Concomitant]
     Active Substance: BENSERAZIDE\LEVODOPA
     Indication: PRODUCT USED FOR UNKNOWN INDICATION
     Dosage: FORM STRENGTH: 100MG/25MG, AS NEEDED FOR THE NIGHT
  11. DUODOPA [Suspect]
     Active Substance: CARBIDOPA\LEVODOPA
     Dosage: AM= 0.5 ML; CD= 1.7 ML/H DURING 16 HRS; ED= 0 ML
     Route: 050
     Dates: start: 20170131, end: 20170202
  12. DUODOPA [Suspect]
     Active Substance: CARBIDOPA\LEVODOPA
     Dosage: AM= 0.6 ML; CD= 1.7(AM)- 1.8(PM) / HRS DURING 16RHS; ED= 0 ML
     Route: 050
     Dates: start: 20170208, end: 20170210
  13. DUODOPA [Suspect]
     Active Substance: CARBIDOPA\LEVODOPA
     Dosage: AM= 1.8 ML; CD= 2.3 ML/H DURING 16 HRS; ED= 0.8 ML
     Route: 050
     Dates: start: 20161020, end: 201611
  14. DUODOPA [Suspect]
     Active Substance: CARBIDOPA\LEVODOPA
     Dosage: AM= 0.9 ML; CD= 1.7 ML/H DURING 16 HRS; ED= 0 ML
     Route: 050
     Dates: start: 20170206, end: 20170208
  15. PROLOPA [Concomitant]
     Active Substance: BENSERAZIDE\LEVODOPA
     Indication: PARKINSON^S DISEASE
     Dosage: FORM STRENGTH: 200MG/50MG, UNIT DOSE: 0.25 TABLET
  16. DUODOPA [Suspect]
     Active Substance: CARBIDOPA\LEVODOPA
     Dosage: DOSES CONTINUOUSLY MONITORED AND ADAPTED
     Route: 050
     Dates: start: 20120403, end: 20161020
  17. DUODOPA [Suspect]
     Active Substance: CARBIDOPA\LEVODOPA
     Dosage: AM: 3.8ML; CD:2.5ML/H FOR 16HRS; ED: 0ML
     Route: 050
     Dates: start: 20161210, end: 20161215

REACTIONS (6)
  - Hyperkinesia [Unknown]
  - Hospitalisation [Unknown]
  - Dyskinesia [Not Recovered/Not Resolved]
  - Freezing phenomenon [Unknown]
  - Depressed mood [Unknown]
  - Emotional distress [Unknown]
